FAERS Safety Report 23084901 (Version 1)
Quarter: 2023Q4

REPORT INFORMATION
  Report Type: Spontaneous
  Country: US (occurrence: US)
  Receive Date: 20231019
  Receipt Date: 20231019
  Transmission Date: 20240110
  Serious: No
  Sender: FDA-Public Use
  Company Number: US-AMGEN-USASP2023185674

PATIENT
  Age: 63 Year
  Sex: Female

DRUGS (1)
  1. REPATHA [Suspect]
     Active Substance: EVOLOCUMAB
     Indication: Arterial disorder
     Dosage: 420 MILLIGRAM, QMO
     Route: 058

REACTIONS (2)
  - Injection site extravasation [Unknown]
  - Off label use [Unknown]

NARRATIVE: CASE EVENT DATE: 20231016
